FAERS Safety Report 7132665-8 (Version None)
Quarter: 2010Q4

REPORT INFORMATION
  Report Type: 
  Country: None (occurrence: None)
  Receive Date: 20101130
  Receipt Date: 20101130
  Transmission Date: 20110411
  Serious: Yes (Hospitalization)
  Sender: FDA-Public Use
  Company Number: None

PATIENT
  Sex: Male
  Weight: 72.5755 kg

DRUGS (1)
  1. SINEMET CR [Suspect]
     Indication: TREMOR
     Dosage: 1 PILL MORNING, 12 1 PILL 4 1PI ABOUT EVERY 4 HOUR ; AFTER A WEEK IT WAS 2 PILLS
     Dates: start: 20100509, end: 20101007

REACTIONS (9)
  - APHAGIA [None]
  - DYSSTASIA [None]
  - FATIGUE [None]
  - MALAISE [None]
  - MUSCLE RIGIDITY [None]
  - MUSCULAR WEAKNESS [None]
  - ULCER [None]
  - WEIGHT DECREASED [None]
  - WRONG TECHNIQUE IN DRUG USAGE PROCESS [None]
